FAERS Safety Report 9731399 (Version 2)
Quarter: 2013Q4

REPORT INFORMATION
  Report Type: Spontaneous
  Country: SE (occurrence: SE)
  Receive Date: 20131205
  Receipt Date: 20131217
  Transmission Date: 20140711
  Serious: Yes (Hospitalization)
  Sender: FDA-Public Use
  Company Number: SE-ASTRAZENECA-2013SE87978

PATIENT
  Sex: 0

DRUGS (1)
  1. SYMBICORT FORTE [Suspect]
     Dosage: 320/9 UG, UNKNOWN FREQUENCY
     Route: 055

REACTIONS (3)
  - Condition aggravated [Unknown]
  - Drug ineffective [Unknown]
  - Circumstance or information capable of leading to medication error [Unknown]
